FAERS Safety Report 19134237 (Version 1)
Quarter: 2021Q2

REPORT INFORMATION
  Report Type: Spontaneous
  Country: DE (occurrence: US)
  Receive Date: 20210414
  Receipt Date: 20210414
  Transmission Date: 20210717
  Serious: Yes (Hospitalization, Other)
  Sender: FDA-Public Use
  Company Number: US-SA-2021SA118882

PATIENT
  Age: 51 Year
  Sex: Female

DRUGS (16)
  1. CAMPATH [Suspect]
     Active Substance: ALEMTUZUMAB
     Indication: ACUTE LYMPHOCYTIC LEUKAEMIA
     Dosage: 100 MG, QD (100 MG, (30/1)QD (FIFTH COURSE)
     Route: 042
     Dates: start: 20120501
  2. SPRYCEL [Suspect]
     Active Substance: DASATINIB
     Indication: ACUTE LYMPHOCYTIC LEUKAEMIA
     Dosage: UNK
     Route: 048
     Dates: start: 20120426, end: 20121108
  3. METHYLPREDNISOLONE. [Concomitant]
     Active Substance: METHYLPREDNISOLONE
     Indication: PRODUCT USED FOR UNKNOWN INDICATION
     Dosage: UNK
     Route: 065
  4. VINCRISTINE SULFATE. [Suspect]
     Active Substance: VINCRISTINE SULFATE
     Indication: ACUTE LYMPHOCYTIC LEUKAEMIA
     Dosage: UNKNOWN/D
     Route: 042
  5. CAMPATH [Suspect]
     Active Substance: ALEMTUZUMAB
     Dosage: 100 UNK (UNK (30/1 ML)(FIRST COURSE))
     Route: 042
     Dates: start: 20120123
  6. MELPHALAN. [Suspect]
     Active Substance: MELPHALAN
     Dosage: 333 MG, QD (333 MG, QD (FIFTH COURSE)
     Route: 042
     Dates: start: 20120502
  7. DAUNORUBICIN [Suspect]
     Active Substance: DAUNORUBICIN
     Indication: ACUTE LYMPHOCYTIC LEUKAEMIA
     Dosage: ORAL OR IV
     Route: 048
  8. METHOTREXATE. [Suspect]
     Active Substance: METHOTREXATE
     Indication: ACUTE LYMPHOCYTIC LEUKAEMIA
     Dosage: UNKNOWN/D
     Route: 042
  9. DEXAMETHASONE. [Suspect]
     Active Substance: DEXAMETHASONE
     Indication: ACUTE LYMPHOCYTIC LEUKAEMIA
     Dosage: UNKNOWN/D
     Route: 048
  10. CYCLOPHOSPHAMIDE. [Suspect]
     Active Substance: CYCLOPHOSPHAMIDE
     Indication: ACUTE LYMPHOCYTIC LEUKAEMIA
     Dosage: UNKNOWN/D
     Route: 065
  11. PROGRAF [Suspect]
     Active Substance: TACROLIMUS
     Indication: PRODUCT USED FOR UNKNOWN INDICATION
     Dosage: UNKNOWN/D
     Route: 065
  12. MELPHALAN. [Suspect]
     Active Substance: MELPHALAN
     Indication: ACUTE LYMPHOCYTIC LEUKAEMIA
     Dosage: 333 MG (TOTAL DOSE, UNK (FIRST COURSE)
     Route: 042
     Dates: start: 20120123
  13. FLUDARA [Suspect]
     Active Substance: FLUDARABINE PHOSPHATE
     Indication: ACUTE LYMPHOCYTIC LEUKAEMIA
     Dosage: 355 MG, QD (FIFTH COURSE)
     Route: 042
     Dates: start: 20120501
  14. FLUDARA [Suspect]
     Active Substance: FLUDARABINE PHOSPHATE
     Dosage: 355 MG, TOTAL (TOTAL DOSE, UNK (FIRST COURSE))
     Route: 042
     Dates: start: 20120123
  15. SPRYCEL [Suspect]
     Active Substance: DASATINIB
     Dosage: UNK (UNK (FIRST COURSE))
     Route: 048
     Dates: start: 20120123
  16. MERCAPTOPURINE. [Suspect]
     Active Substance: MERCAPTOPURINE
     Indication: ACUTE LYMPHOCYTIC LEUKAEMIA
     Dosage: UNKNOWN/D
     Route: 065

REACTIONS (14)
  - Pericardial effusion [Recovering/Resolving]
  - Renal failure [Not Recovered/Not Resolved]
  - Cytopenia [Not Recovered/Not Resolved]
  - Hallucinations, mixed [Recovered/Resolved]
  - Pleural effusion [Recovering/Resolving]
  - Pericardial effusion [Recovering/Resolving]
  - Acute kidney injury [Unknown]
  - Hypokalaemia [Recovering/Resolving]
  - Nausea [Recovering/Resolving]
  - Muscular weakness [Recovering/Resolving]
  - Hypophagia [Unknown]
  - Diarrhoea [Recovering/Resolving]
  - Microangiopathic haemolytic anaemia [Unknown]
  - Clostridium difficile colitis [Recovering/Resolving]

NARRATIVE: CASE EVENT DATE: 2012
